FAERS Safety Report 24772514 (Version 1)
Quarter: 2024Q4

REPORT INFORMATION
  Report Type: Spontaneous
  Country: DE (occurrence: DE)
  Receive Date: 20241224
  Receipt Date: 20241224
  Transmission Date: 20250114
  Serious: Yes (Other)
  Sender: ALEXION PHARMACEUTICALS
  Company Number: DE-AstraZeneca-CH-00770509A

PATIENT

DRUGS (4)
  1. TRUQAP [Suspect]
     Active Substance: CAPIVASERTIB
     Indication: Breast cancer metastatic
     Dosage: 800 MILLIGRAM, QD
  2. TRUQAP [Suspect]
     Active Substance: CAPIVASERTIB
     Dosage: 800 MILLIGRAM, QD
     Route: 048
  3. TRUQAP [Suspect]
     Active Substance: CAPIVASERTIB
     Dosage: 800 MILLIGRAM, QD
  4. TRUQAP [Suspect]
     Active Substance: CAPIVASERTIB
     Dosage: 800 MILLIGRAM, QD
     Route: 048

REACTIONS (1)
  - Nephritis [Unknown]
